FAERS Safety Report 6037604-9 (Version None)
Quarter: 2009Q1

REPORT INFORMATION
  Report Type: 
  Country: None (occurrence: None)
  Receive Date: 20090114
  Receipt Date: 20090108
  Transmission Date: 20090719
  Serious: Yes (Hospitalization, Other)
  Sender: FDA-Public Use
  Company Number: US-ROXANE LABORATORIES, INC.-2009-RO-00035RO

PATIENT
  Age: 47 Year
  Sex: Female

DRUGS (14)
  1. LITHIUM CARBONATE [Suspect]
     Indication: MENTAL DISORDER
     Dosage: 600MG
  2. PROPRANOLOL [Suspect]
     Indication: HYPERTENSION
     Dosage: 20MG
  3. AMLODIPINE BESYLATE [Suspect]
     Indication: HYPERTENSION
     Dosage: 5MG
  4. TRAZODONE HCL [Suspect]
     Indication: MENTAL DISORDER
     Dosage: 50MG
  5. FLUOXETINE HCL [Suspect]
     Indication: MENTAL DISORDER
     Dosage: 120MG
  6. DOXEPIN HYDROCHLORIDE [Suspect]
     Indication: MENTAL DISORDER
     Dosage: 50MG
  7. PANCRELIPASE [Suspect]
     Indication: PANCREATIC INSUFFICIENCY
  8. PHENYTOIN [Suspect]
     Indication: CONVULSION
     Dosage: 300MG
  9. METOCLOPRAMIDE [Suspect]
     Indication: IMPAIRED GASTRIC EMPTYING
     Dosage: 40MG
  10. TIZANIDINE HCL [Suspect]
     Dosage: 4MG
  11. CARISOPRODOL [Suspect]
     Indication: BACK PAIN
     Dosage: 1050MG
  12. HYDROCODONE BITARTRATE [Suspect]
     Indication: BACK PAIN
  13. LEVOTHYROXINE SODIUM [Suspect]
     Indication: THYROID DISORDER
     Dosage: 75MCG
  14. NORMAL SALINE DIURESIS [Concomitant]

REACTIONS (5)
  - DRUG SCREEN POSITIVE [None]
  - OPIATES POSITIVE [None]
  - OVERDOSE [None]
  - SKIN LACERATION [None]
  - THERAPEUTIC AGENT TOXICITY [None]
